FAERS Safety Report 7598794-X (Version None)
Quarter: 2011Q3

REPORT INFORMATION
  Report Type: 
  Country: None (occurrence: None)
  Receive Date: 20110711
  Receipt Date: 20110628
  Transmission Date: 20111222
  Serious: No
  Sender: FDA-Public Use
  Company Number: US-BIOGENIDEC-2011BI018413

PATIENT
  Age: 54 Year
  Sex: Female

DRUGS (3)
  1. TYSABRI [Suspect]
     Indication: MULTIPLE SCLEROSIS
     Route: 042
     Dates: start: 20061106
  2. TYSABRI [Suspect]
     Route: 042
     Dates: start: 19961101
  3. AVONEX [Concomitant]
     Indication: MULTIPLE SCLEROSIS
     Route: 030
     Dates: start: 20061101

REACTIONS (7)
  - BRONCHITIS [None]
  - RASH ERYTHEMATOUS [None]
  - WEIGHT DECREASED [None]
  - JOINT SWELLING [None]
  - HERPES ZOSTER [None]
  - RASH [None]
  - DYSPNOEA [None]
